FAERS Safety Report 9403519 (Version 1)
Quarter: 2013Q3

REPORT INFORMATION
  Report Type: Spontaneous
  Country: IT (occurrence: IT)
  Receive Date: 20130716
  Receipt Date: 20130716
  Transmission Date: 20140515
  Serious: Yes (Other)
  Sender: FDA-Public Use
  Company Number: IT-JNJFOC-20130708242

PATIENT
  Age: 32 Year
  Sex: Female

DRUGS (4)
  1. ZIRTEC [Suspect]
     Route: 048
  2. ZIRTEC [Suspect]
     Indication: ROSACEA
     Route: 048
     Dates: start: 20130424, end: 20130429
  3. AMBRAMYCIN [Suspect]
     Indication: ROSACEA
     Route: 048
     Dates: start: 20130424, end: 20130429
  4. FOLIC ACID [Concomitant]
     Indication: PRODUCT USED FOR UNKNOWN INDICATION
     Route: 048

REACTIONS (3)
  - Exposure during pregnancy [Recovered/Resolved]
  - Maternal exposure timing unspecified [Unknown]
  - Off label use [Unknown]
